FAERS Safety Report 14236140 (Version 1)
Quarter: 2017Q4

REPORT INFORMATION
  Report Type: Spontaneous
  Country: TH (occurrence: TH)
  Receive Date: 20171129
  Receipt Date: 20171129
  Transmission Date: 20180321
  Serious: Yes (Other)
  Sender: FDA-Public Use
  Company Number: TH-LUPIN PHARMACEUTICALS INC.-2017-06874

PATIENT
  Age: 56 Year
  Sex: Female

DRUGS (1)
  1. TRIAMCINOLONE ACETONIDE. [Suspect]
     Active Substance: TRIAMCINOLONE ACETONIDE
     Indication: FIBROMATOSIS
     Dosage: 65 MG, UNK
     Route: 026

REACTIONS (4)
  - Hypertension [Not Recovered/Not Resolved]
  - Oedema peripheral [Recovered/Resolved]
  - Diabetes mellitus [Recovered/Resolved]
  - Hypothalamic pituitary adrenal axis suppression [Unknown]
